FAERS Safety Report 21027552 (Version 1)
Quarter: 2022Q2

REPORT INFORMATION
  Report Type: Spontaneous
  Country: US (occurrence: US)
  Receive Date: 20220630
  Receipt Date: 20220630
  Transmission Date: 20220720
  Serious: Yes (Other)
  Sender: FDA-Public Use
  Company Number: US-PURDUE-USA-2022-0294805

PATIENT

DRUGS (2)
  1. DILAUDID [Interacting]
     Active Substance: HYDROMORPHONE HYDROCHLORIDE
     Indication: Pain
     Dosage: UNK
     Route: 048
  2. CORTISONE ACETATE [Interacting]
     Active Substance: CORTISONE ACETATE
     Indication: Pain
     Dosage: UNK
     Route: 065

REACTIONS (40)
  - Pneumonia [Unknown]
  - Bacteraemia [Unknown]
  - Candida sepsis [Unknown]
  - Device related infection [Unknown]
  - Drug dependence [Unknown]
  - Cerebral venous thrombosis [Unknown]
  - Cerebrovascular accident [Unknown]
  - Seizure [Unknown]
  - Appendicitis [Unknown]
  - Tricuspid valve incompetence [Unknown]
  - Bacterial infection [Unknown]
  - Blood glucose fluctuation [Unknown]
  - Candida infection [Unknown]
  - Catheter site haemorrhage [Unknown]
  - Catheter site pain [Unknown]
  - Dizziness [Unknown]
  - Depression [Unknown]
  - Insomnia [Unknown]
  - Arthralgia [Unknown]
  - Dyscalculia [Unknown]
  - Fatigue [Unknown]
  - Headache [Unknown]
  - Musculoskeletal stiffness [Unknown]
  - Dyspnoea [Unknown]
  - Erythema [Unknown]
  - Infusion related reaction [Unknown]
  - Nausea [Unknown]
  - Oxygen saturation decreased [Unknown]
  - Pneumonitis [Unknown]
  - Rash [Unknown]
  - Aphasia [Unknown]
  - Anxiety [Unknown]
  - Asthma [Unknown]
  - Fall [Unknown]
  - Gastrooesophageal reflux disease [Unknown]
  - Aptyalism [Unknown]
  - Bone disorder [Unknown]
  - Bone fragmentation [Unknown]
  - Bone pain [Unknown]
  - Drug interaction [Unknown]
